FAERS Safety Report 4718291-6 (Version None)
Quarter: 2005Q3

REPORT INFORMATION
  Report Type: 
  Country: None (occurrence: None)
  Receive Date: 20050718
  Receipt Date: 20050718
  Transmission Date: 20060218
  Serious: Yes (Death)
  Sender: FDA-Public Use
  Company Number: None

PATIENT
  Age: 50 Year
  Sex: Female
  Weight: 78.4723 kg

DRUGS (3)
  1. DURAGESIC-50 [Suspect]
     Indication: PAIN
     Dosage: 50MG PATCH   72 HOURS   TRANSDERMA
     Route: 062
     Dates: start: 20031113, end: 20031115
  2. HYDROCODONE BITARTRATE [Concomitant]
  3. PROMETHAZINE [Concomitant]

REACTIONS (3)
  - CARDIAC FAILURE [None]
  - DRUG ABUSER [None]
  - RESPIRATORY FAILURE [None]
